FAERS Safety Report 7750344-0 (Version None)
Quarter: 2011Q3

REPORT INFORMATION
  Report Type: 
  Country: None (occurrence: None)
  Receive Date: 20110912
  Receipt Date: 20110829
  Transmission Date: 20111222
  Serious: Yes (Other)
  Sender: FDA-Public Use
  Company Number: 2011-3591

PATIENT
  Age: 65 Year
  Sex: Male

DRUGS (2)
  1. DYSPORT (BOTULINUM TOXIN TYPE A) (BOTULINUM TOXIN TYPE A) [Suspect]
     Indication: MUSCLE SPASTICITY
     Dosage: 1300 UNITS (1300 UNITS, SINGLE CYCLE) INTRAMUSCULAR
     Route: 030
     Dates: start: 20110628, end: 20110628
  2. LANTUS [Concomitant]

REACTIONS (7)
  - DYSPHAGIA [None]
  - CATAPLEXY [None]
  - CONDITION AGGRAVATED [None]
  - ALTERED STATE OF CONSCIOUSNESS [None]
  - MALAISE [None]
  - MUSCULAR WEAKNESS [None]
  - FALL [None]
